FAERS Safety Report 8340740-5 (Version None)
Quarter: 2012Q2

REPORT INFORMATION
  Report Type: 
  Country: None (occurrence: None)
  Receive Date: 20120507
  Receipt Date: 20120425
  Transmission Date: 20120825
  Serious: Yes (Hospitalization, Other)
  Sender: FDA-Public Use
  Company Number: US-BIOGENIDEC-2011BI048232

PATIENT
  Age: 27 Year
  Sex: Female

DRUGS (2)
  1. AVONEX [Suspect]
     Indication: MULTIPLE SCLEROSIS
     Route: 030
     Dates: start: 20020404, end: 20070607
  2. AVONEX [Suspect]
     Route: 030
     Dates: start: 20110425

REACTIONS (2)
  - ECTOPIC PREGNANCY [None]
  - ABORTION SPONTANEOUS [None]
